FAERS Safety Report 15449964 (Version 1)
Quarter: 2018Q4

REPORT INFORMATION
  Report Type: Spontaneous
  Country: NL (occurrence: NL)
  Receive Date: 20181001
  Receipt Date: 20181001
  Transmission Date: 20190204
  Serious: Yes (Other)
  Sender: FDA-Public Use
  Company Number: NL-SUN PHARMACEUTICAL INDUSTRIES LTD-2018RR-185693

PATIENT
  Sex: Male
  Weight: 92 kg

DRUGS (4)
  1. METFORMINE 500MG [Concomitant]
     Indication: PRODUCT USED FOR UNKNOWN INDICATION
     Dosage: 1 DD 1
     Route: 065
  2. ATORVASTATIN [Suspect]
     Active Substance: ATORVASTATIN
     Indication: HYPERCHOLESTEROLAEMIA
     Dosage: 1 X PER DAG 1
     Route: 050
     Dates: start: 2014, end: 20180208
  3. HYDROXOCABALAMINE INJECTIES 500MCG? [Concomitant]
     Indication: PRODUCT USED FOR UNKNOWN INDICATION
     Dosage: ()
     Route: 065
  4. TAMSULOSINE 0.4MG [Concomitant]
     Indication: PRODUCT USED FOR UNKNOWN INDICATION
     Dosage: 1 DD 1
     Route: 065

REACTIONS (2)
  - Affective disorder [Recovered/Resolved]
  - Cognitive disorder [Recovered/Resolved]
